FAERS Safety Report 5195793-2 (Version None)
Quarter: 2007Q1

REPORT INFORMATION
  Report Type: 
  Country: None (occurrence: None)
  Receive Date: 20070102
  Receipt Date: 20061219
  Transmission Date: 20070707
  Serious: Yes (Hospitalization)
  Sender: FDA-Public Use
  Company Number: US-AMGEN-KDL202436

PATIENT
  Sex: Female

DRUGS (16)
  1. ENBREL [Suspect]
     Indication: RHEUMATOID ARTHRITIS
     Route: 058
     Dates: start: 20060801
  2. DEXAMETHASONE [Concomitant]
     Route: 048
  3. PREVACID [Concomitant]
  4. FLINTSTONES MULTIPLE VITAMINS [Concomitant]
  5. POTASSIUM ACETATE [Concomitant]
     Route: 048
  6. FLUOXETINE [Concomitant]
     Route: 048
  7. PROPRANOLOL [Concomitant]
     Route: 048
  8. VIVACTIL [Concomitant]
     Route: 048
  9. FOLIC ACID [Concomitant]
     Route: 048
  10. LEVOTHYROXINE SODIUM [Concomitant]
     Route: 048
  11. CLONAZEPAM [Concomitant]
     Route: 048
  12. TIZANIDINE HCL [Concomitant]
     Route: 048
  13. CITRACAL [Concomitant]
     Route: 048
  14. WELLBUTRIN [Concomitant]
  15. ZYPREXA [Concomitant]
     Route: 048
  16. VITAMIN B-12 [Concomitant]
     Route: 048

REACTIONS (5)
  - INJECTION SITE ERYTHEMA [None]
  - INJECTION SITE PRURITUS [None]
  - INJECTION SITE REACTION [None]
  - INJECTION SITE SWELLING [None]
  - MIGRAINE [None]
